FAERS Safety Report 22024133 (Version 1)
Quarter: 2023Q1

REPORT INFORMATION
  Report Type: Spontaneous
  Country: RU (occurrence: RU)
  Receive Date: 20230223
  Receipt Date: 20230223
  Transmission Date: 20230418
  Serious: Yes (Other)
  Sender: FDA-Public Use
  Company Number: RU-SUN PHARMACEUTICAL INDUSTRIES LTD-2023R1-380447

PATIENT
  Age: 61 Year
  Sex: Male

DRUGS (5)
  1. DEXAMETHASONE [Suspect]
     Active Substance: DEXAMETHASONE
     Indication: COVID-19
     Dosage: 8 MILLIGRAM, DAILY
     Route: 065
  2. DEXAMETHASONE [Suspect]
     Active Substance: DEXAMETHASONE
     Dosage: 24 MILLIGRAM, DAILY
     Route: 065
  3. AMBROXOL [Suspect]
     Active Substance: AMBROXOL
     Indication: COVID-19
     Dosage: UNK
     Route: 065
  4. NADROPARIN [Suspect]
     Active Substance: NADROPARIN
     Indication: COVID-19
     Dosage: UNK
     Route: 065
  5. FAVIPIRAVIR [Concomitant]
     Active Substance: FAVIPIRAVIR
     Indication: COVID-19
     Route: 065

REACTIONS (1)
  - Condition aggravated [Unknown]
